FAERS Safety Report 13621627 (Version 1)
Quarter: 2017Q2

REPORT INFORMATION
  Report Type: Spontaneous
  Country: US (occurrence: US)
  Receive Date: 20170607
  Receipt Date: 20170607
  Transmission Date: 20170830
  Serious: Yes (Other)
  Sender: FDA-Public Use
  Company Number: US-LUNDBECK-DKLU2032205

PATIENT
  Sex: Male

DRUGS (2)
  1. SABRIL [Suspect]
     Active Substance: VIGABATRIN
     Indication: INFANTILE SPASMS
     Route: 048
     Dates: start: 20160426
  2. SABRIL [Suspect]
     Active Substance: VIGABATRIN
     Route: 048
     Dates: start: 20160426

REACTIONS (2)
  - Visual impairment [Unknown]
  - Hypoacusis [Unknown]
